FAERS Safety Report 6667579-0 (Version None)
Quarter: 2010Q2

REPORT INFORMATION
  Report Type: 
  Country: None (occurrence: None)
  Receive Date: 20100401
  Receipt Date: 20100312
  Transmission Date: 20101027
  Serious: Yes (Hospitalization, Other)
  Sender: FDA-Public Use
  Company Number: JPI-P-009964

PATIENT
  Age: 37 Year
  Sex: Male
  Weight: 86.1834 kg

DRUGS (11)
  1. XYREM [Suspect]
     Indication: SLEEP DISORDER
     Dosage: 4.5 GM (2.25 GM, 2 IN 1 D), ORAL 9 GM (4.5 GM, 2 IN 1 D), ORAL 4.5 GM (4.5 GM, 1 IN 1 D), ORAL 9 GM
     Route: 048
     Dates: end: 20100302
  2. XYREM [Suspect]
     Indication: SLEEP DISORDER
     Dosage: 4.5 GM (2.25 GM, 2 IN 1 D), ORAL 9 GM (4.5 GM, 2 IN 1 D), ORAL 4.5 GM (4.5 GM, 1 IN 1 D), ORAL 9 GM
     Route: 048
     Dates: start: 20100303, end: 20100304
  3. XYREM [Suspect]
     Indication: SLEEP DISORDER
     Dosage: 4.5 GM (2.25 GM, 2 IN 1 D), ORAL 9 GM (4.5 GM, 2 IN 1 D), ORAL 4.5 GM (4.5 GM, 1 IN 1 D), ORAL 9 GM
     Route: 048
     Dates: start: 20060913
  4. XYREM [Suspect]
     Indication: SLEEP DISORDER
     Dosage: 4.5 GM (2.25 GM, 2 IN 1 D), ORAL 9 GM (4.5 GM, 2 IN 1 D), ORAL 4.5 GM (4.5 GM, 1 IN 1 D), ORAL 9 GM
     Route: 048
     Dates: start: 20100305
  5. XYREM [Suspect]
  6. DESMOPRESSIN ACETATE [Suspect]
     Indication: DIABETES INSIPIDUS
     Dosage: (LOWEST POSSIBLE DOSE), INTRA-NASAL
     Dates: start: 20100301
  7. MILNACIPRAN HYDROCHLORIDE [Concomitant]
  8. DEXTROAMPHETAMINE [Concomitant]
  9. RAMELTEON [Concomitant]
  10. METHYLPHENIDATE [Concomitant]
  11. PROPOXYPHENE HCL [Concomitant]

REACTIONS (10)
  - CONFUSIONAL STATE [None]
  - CONVULSION [None]
  - DIABETES INSIPIDUS [None]
  - ELECTROLYTE IMBALANCE [None]
  - FATIGUE [None]
  - HEADACHE [None]
  - HYPONATRAEMIA [None]
  - MEMORY IMPAIRMENT [None]
  - SOMNOLENCE [None]
  - WATER INTOXICATION [None]
